FAERS Safety Report 8197327 (Version 2)
Quarter: 2012Q4

REPORT INFORMATION
  Report Type: Report from Study
  Country: US (occurrence: US)
  Receive Date: 20111024
  Receipt Date: 20121025
  Transmission Date: 20130627
  Serious: No
  Sender: FDA-Public Use
  Company Number: US-ABBOTT-11P-163-0726535-00

PATIENT
  Age: 45 Year
  Sex: Female
  Weight: 79.45 kg

DRUGS (5)
  1. LUPRON DEPOT 3.75 MG [Suspect]
     Indication: UTERINE LEIOMYOMA
     Route: 030
     Dates: start: 20110427
  2. AYGESTIN [Suspect]
     Indication: MENOPAUSAL SYMPTOMS
     Dates: start: 20110427
  3. PROZAC [Concomitant]
     Indication: PROPHYLAXIS
  4. PROZAC [Concomitant]
     Indication: MOOD SWINGS
  5. UNKNOWN ADD BACK THERAPY [Concomitant]
     Indication: PRODUCT USED FOR UNKNOWN INDICATION
     Dates: start: 201103

REACTIONS (5)
  - Deep vein thrombosis [Recovered/Resolved]
  - Paraesthesia [Not Recovered/Not Resolved]
  - Vaginal haemorrhage [Not Recovered/Not Resolved]
  - Back pain [Not Recovered/Not Resolved]
  - Abdominal discomfort [Not Recovered/Not Resolved]
